FAERS Safety Report 10978671 (Version 1)
Quarter: 2015Q1

REPORT INFORMATION
  Report Type: Spontaneous
  Country: IN (occurrence: None)
  Receive Date: 20150331
  Receipt Date: 20150331
  Transmission Date: 20150721
  Serious: Yes (Life-Threatening, Other)
  Sender: FDA-Public Use
  Company Number: BD-2015-0240

PATIENT
  Age: 22 Year
  Sex: Female
  Weight: 48 kg

DRUGS (2)
  1. GLYCOPYRROLATE /00196201/ (GLYCOPYRRONIUM) [Concomitant]
  2. ONDANSETRON (ONDANSETRON) INJECTION [Suspect]
     Active Substance: ONDANSETRON
     Indication: PREMEDICATION
     Route: 042

REACTIONS (3)
  - Respiratory arrest [None]
  - Sinus tachycardia [None]
  - Heart rate increased [None]
